FAERS Safety Report 10901497 (Version 1)
Quarter: 2015Q1

REPORT INFORMATION
  Report Type: Spontaneous
  Country: US (occurrence: None)
  Receive Date: 20150303
  Receipt Date: 20150303
  Transmission Date: 20150721
  Serious: Yes (Disabling)
  Sender: FDA-Public Use
  Company Number: None

PATIENT
  Age: 68 Year
  Sex: Female
  Weight: 76.66 kg

DRUGS (10)
  1. RESTASIS [Concomitant]
     Active Substance: CYCLOSPORINE
  2. LEVOFLOXACIN. [Suspect]
     Active Substance: LEVOFLOXACIN
     Indication: CULTURE
     Dosage: 1 TABLET ONCE DAILY TAKEN BY MOUTH
     Route: 048
     Dates: start: 20150228, end: 20150302
  3. SYNTHROID [Concomitant]
     Active Substance: LEVOTHYROXINE SODIUM
  4. GABBAPETEN [Concomitant]
  5. PREVACID [Concomitant]
     Active Substance: LANSOPRAZOLE
  6. MULTIVITAMINS FOR WOMEN [Concomitant]
  7. CAL/ MAG/ VIT DE [Concomitant]
  8. TRAMADOL [Concomitant]
     Active Substance: TRAMADOL
  9. PRAVASTATIN [Concomitant]
     Active Substance: PRAVASTATIN\PRAVASTATIN SODIUM
  10. VITAMIN K2 [Concomitant]
     Active Substance: MENAQUINONE 6

REACTIONS (3)
  - Myalgia [None]
  - Muscle spasms [None]
  - Musculoskeletal stiffness [None]

NARRATIVE: CASE EVENT DATE: 20150228
